FAERS Safety Report 8512379-X (Version None)
Quarter: 2012Q3

REPORT INFORMATION
  Report Type: 
  Country: None (occurrence: None)
  Receive Date: 20120716
  Receipt Date: 20120709
  Transmission Date: 20120928
  Serious: Yes (Other)
  Sender: FDA-Public Use
  Company Number: US-INCYTE CORPORATION-2012IN001239

PATIENT
  Sex: Male

DRUGS (1)
  1. JAKAFI [Suspect]
     Dosage: 10 MG, QD
     Route: 048
     Dates: start: 20120305, end: 20120625

REACTIONS (1)
  - ACUTE LEUKAEMIA [None]
